FAERS Safety Report 5696555-X (Version None)
Quarter: 2008Q2

REPORT INFORMATION
  Report Type: 
  Country: None (occurrence: None)
  Receive Date: 20080404
  Receipt Date: 20080404
  Transmission Date: 20081010
  Serious: Yes (Hospitalization)
  Sender: FDA-Public Use
  Company Number: None

PATIENT
  Age: 81 Year
  Sex: Male
  Weight: 87.4 kg

DRUGS (3)
  1. COUMADIN [Suspect]
     Dosage: 3 MG   TUES, THURS, SAT   PO
     Route: 048
  2. PLAVIX [Suspect]
     Dosage: 75 MG EVERY DAY PO
     Route: 048
  3. ASPIRIN [Concomitant]

REACTIONS (2)
  - HAEMATOCHEZIA [None]
  - RECTAL HAEMORRHAGE [None]
